FAERS Safety Report 16569282 (Version 1)
Quarter: 2019Q3

REPORT INFORMATION
  Report Type: Spontaneous
  Country: US (occurrence: US)
  Receive Date: 20190715
  Receipt Date: 20190715
  Transmission Date: 20191004
  Serious: No
  Sender: FDA-Public Use
  Company Number: US-AUROBINDO-AUR-APL-2019-020164

PATIENT

DRUGS (1)
  1. BUTALBITAL+ACETAMINOPHEN+CAFFEINE CAPSULES [Suspect]
     Active Substance: ACETAMINOPHEN\BUTALBITAL\CAFFEINE
     Indication: PRODUCT USED FOR UNKNOWN INDICATION
     Dosage: UNK
     Route: 065
     Dates: start: 201902

REACTIONS (6)
  - Euphoric mood [Unknown]
  - Headache [Unknown]
  - Product substitution issue [Unknown]
  - Drug ineffective [Unknown]
  - Hypoaesthesia oral [Unknown]
  - Pruritus [Unknown]
